FAERS Safety Report 18548531 (Version 5)
Quarter: 2020Q4

REPORT INFORMATION
  Report Type: Report from Study
  Country: RU (occurrence: RU)
  Receive Date: 20201125
  Receipt Date: 20201224
  Transmission Date: 20210114
  Serious: Yes (Hospitalization)
  Sender: FDA-Public Use
  Company Number: RU-JNJFOC-20201139370

PATIENT
  Age: 15 Year
  Sex: Female
  Weight: 47 kg

DRUGS (1)
  1. GOLIMUMAB [Suspect]
     Active Substance: GOLIMUMAB
     Indication: JUVENILE IDIOPATHIC ARTHRITIS
     Route: 042
     Dates: start: 20170802, end: 20200929

REACTIONS (1)
  - Furuncle [Recovered/Resolved]

NARRATIVE: CASE EVENT DATE: 20201115
